FAERS Safety Report 6137444-6 (Version None)
Quarter: 2009Q1

REPORT INFORMATION
  Report Type: 
  Country: None (occurrence: None)
  Receive Date: 20090326
  Receipt Date: 20090310
  Transmission Date: 20090719
  Serious: Yes (Other)
  Sender: FDA-Public Use
  Company Number: 8043857

PATIENT
  Age: 48 Year
  Sex: Female

DRUGS (2)
  1. LORTAB/01744401/ [Suspect]
  2. SALMETEROL/FLUTICASONPROPIONAAT [Suspect]

REACTIONS (1)
  - ANAPHYLACTIC REACTION [None]
